FAERS Safety Report 7767177-1 (Version None)
Quarter: 2011Q3

REPORT INFORMATION
  Report Type: 
  Country: None (occurrence: None)
  Receive Date: 20110922
  Receipt Date: 20110202
  Transmission Date: 20111222
  Serious: No
  Sender: FDA-Public Use
  Company Number: US-ASTRAZENECA-2011SE05753

PATIENT
  Age: 62 Year
  Sex: Male
  Weight: 113.4 kg

DRUGS (5)
  1. SEROQUEL [Suspect]
     Route: 048
  2. SIMVASTATIN [Concomitant]
     Indication: HYPERCHOLESTEROLAEMIA
  3. LISINOPRIL [Concomitant]
     Indication: BLOOD PRESSURE
  4. CYMBALTA [Concomitant]
  5. SEROQUEL [Suspect]
     Route: 048
     Dates: start: 20090101

REACTIONS (6)
  - THINKING ABNORMAL [None]
  - INSOMNIA [None]
  - DRUG DOSE OMISSION [None]
  - NAUSEA [None]
  - SOMNOLENCE [None]
  - FEELING ABNORMAL [None]
